FAERS Safety Report 23262370 (Version 1)
Quarter: 2023Q4

REPORT INFORMATION
  Report Type: Spontaneous
  Country: CA (occurrence: None)
  Receive Date: 20231205
  Receipt Date: 20231205
  Transmission Date: 20240110
  Serious: Yes (Other)
  Sender: FDA-Public Use
  Company Number: CA-ROCHE-3467282

PATIENT
  Age: 9 Month
  Sex: Male

DRUGS (3)
  1. SOMATROPIN [Suspect]
     Active Substance: SOMATROPIN
     Indication: Prader-Willi syndrome
     Route: 058
  2. IRON [Concomitant]
     Active Substance: IRON
  3. OXYGEN [Concomitant]
     Active Substance: OXYGEN

REACTIONS (1)
  - Feeding disorder [Unknown]
